FAERS Safety Report 9223869 (Version 2)
Quarter: 2013Q2

REPORT INFORMATION
  Report Type: Spontaneous
  Country: US (occurrence: US)
  Receive Date: 20130411
  Receipt Date: 20130610
  Transmission Date: 20140414
  Serious: Yes (Other)
  Sender: FDA-Public Use
  Company Number: US-AMGEN-USASP2013023607

PATIENT
  Age: 66 Year
  Sex: Female
  Weight: 82.99 kg

DRUGS (9)
  1. PROLIA [Suspect]
     Indication: OSTEOPOROSIS POSTMENOPAUSAL
     Dosage: UNK UNK, Q6MO
     Dates: start: 20120630
  2. ZOSTA [Concomitant]
     Dosage: 10 MG, UNK
  3. ADVAIR [Concomitant]
  4. OMEPRAZOLE [Concomitant]
     Dosage: 40 MG, UNK
  5. FENOFIBRATE [Concomitant]
     Dosage: 160 MG, UNK
  6. SYNTHYROID [Concomitant]
     Dosage: 0.1 MG, UNK
  7. ZOFRAN                             /00955301/ [Concomitant]
     Dosage: 8 MG, UNK
  8. PRILOSEC                           /00661201/ [Concomitant]
     Dosage: 40 MG, UNK
  9. ETODOLAC [Concomitant]
     Dosage: 400 MG, UNK

REACTIONS (8)
  - Gastrointestinal disorder [Recovered/Resolved]
  - Pancreatitis [Recovered/Resolved]
  - Liver function test abnormal [Recovered/Resolved]
  - Weight decreased [Recovered/Resolved]
  - Nausea [Unknown]
  - Vomiting [Unknown]
  - Back pain [Not Recovered/Not Resolved]
  - Sciatica [Not Recovered/Not Resolved]
